FAERS Safety Report 16511343 (Version 1)
Quarter: 2019Q3

REPORT INFORMATION
  Report Type: Spontaneous
  Country: PT (occurrence: PT)
  Receive Date: 20190702
  Receipt Date: 20190702
  Transmission Date: 20191004
  Serious: Yes (Hospitalization, Other)
  Sender: FDA-Public Use
  Company Number: PHHY2019PT121006

PATIENT
  Age: 61 Year
  Sex: Male

DRUGS (2)
  1. PAZOPANIB [Suspect]
     Active Substance: PAZOPANIB
     Indication: CLEAR CELL RENAL CELL CARCINOMA
     Route: 065
  2. PAZOPANIB [Suspect]
     Active Substance: PAZOPANIB
     Indication: METASTASES TO LUNG

REACTIONS (9)
  - Haematemesis [Recovered/Resolved]
  - Syncope [Recovered/Resolved]
  - Gastrointestinal haemorrhage [Unknown]
  - Duodenal ulcer perforation [Recovered/Resolved]
  - Hypotension [Recovered/Resolved]
  - Tachycardia [Recovered/Resolved]
  - Haemoglobin decreased [Recovered/Resolved]
  - Abdominal pain upper [Recovered/Resolved]
  - Melaena [Recovered/Resolved]
